FAERS Safety Report 10471245 (Version 1)
Quarter: 2014Q3

REPORT INFORMATION
  Report Type: Report from Study
  Country: AR (occurrence: AR)
  Receive Date: 20140923
  Receipt Date: 20140923
  Transmission Date: 20150326
  Serious: Yes (Hospitalization, Other)
  Sender: FDA-Public Use
  Company Number: PHHY2014AR123856

PATIENT
  Sex: Male

DRUGS (1)
  1. DIOVAN [Suspect]
     Active Substance: VALSARTAN
     Indication: HYPERTENSION
     Dosage: 1 DF(80 UNITS NOT REPORTED), PER DAY
     Route: 048
     Dates: start: 2004

REACTIONS (5)
  - Cataract [Not Recovered/Not Resolved]
  - Chronic obstructive pulmonary disease [Recovering/Resolving]
  - Agitation [Unknown]
  - Urinary bladder polyp [Unknown]
  - Feeling cold [Unknown]

NARRATIVE: CASE EVENT DATE: 2012
